FAERS Safety Report 8220322 (Version 8)
Quarter: 2014Q2

REPORT INFORMATION
  Report Type: Spontaneous
  Country: US (occurrence: US)
  Receive Date: 20111101
  Receipt Date: 20140409
  Transmission Date: 20141212
  Serious: Yes (Other)
  Sender: FDA-Public Use
  Company Number: US-AMGEN-USASP2011062178

PATIENT
  Sex: Female
  Weight: 11.43 kg

DRUGS (18)
  1. ENBREL [Suspect]
     Indication: PRODUCT USED FOR UNKNOWN INDICATION
     Dosage: 50 MG, QWK
     Route: 064
     Dates: start: 200911
  2. ENBREL [Suspect]
     Indication: PRODUCT USED FOR UNKNOWN INDICATION
     Dosage: 50 MG, QWK
     Route: 064
     Dates: start: 200911
  3. ENBREL [Suspect]
     Dosage: UNK
     Route: 065
  4. ENBREL [Suspect]
     Dosage: UNK
     Route: 065
  5. ENBREL [Suspect]
     Dosage: UNK
     Route: 065
  6. ENBREL [Suspect]
     Dosage: UNK
     Route: 065
  7. ENBREL [Suspect]
     Dosage: UNK
     Route: 065
  8. ENBREL [Suspect]
     Dosage: UNK
     Route: 065
  9. ASPIRIN [Concomitant]
     Dosage: 81 MG, QD
     Route: 064
  10. FOLIC ACID [Concomitant]
     Dosage: 400 MG, QD
     Route: 064
     Dates: start: 201010
  11. ZANTAC [Concomitant]
     Dosage: 150 MG, BID
     Route: 064
     Dates: start: 201101, end: 201111
  12. PRENATAL                           /00231801/ [Concomitant]
     Dosage: UNK UNK, QD
     Route: 064
     Dates: start: 201010
  13. LOTEMAX [Concomitant]
     Dosage: UNK UNK, QD
     Route: 064
  14. COLACE [Concomitant]
     Dosage: 100 MG, BID
  15. CALCIUM CITRATE [Concomitant]
     Dosage: 1500 MG, QD
     Route: 064
     Dates: start: 2007
  16. VITAMIN D                          /00107901/ [Concomitant]
     Dosage: UNK UNK, QD
     Route: 064
  17. PREDNISONE [Concomitant]
     Dosage: 5 MG, QD
     Route: 064
  18. PREDNISONE [Concomitant]
     Dosage: 2.5 MG, QD
     Route: 064
     Dates: start: 201102, end: 201102

REACTIONS (4)
  - Neonatal respiratory distress syndrome [Recovered/Resolved]
  - Cardiac murmur [Recovered/Resolved]
  - Meconium in amniotic fluid [Unknown]
  - Neonatal aspiration [Recovered/Resolved]
